FAERS Safety Report 7005221-X (Version None)
Quarter: 2010Q3

REPORT INFORMATION
  Report Type: 
  Country: None (occurrence: None)
  Receive Date: 20100920
  Receipt Date: 20100920
  Transmission Date: 20110219
  Serious: Yes (Hospitalization, Disabling)
  Sender: FDA-Public Use
  Company Number: None

PATIENT
  Sex: Female

DRUGS (2)
  1. OCTAGAM [Suspect]
     Indication: MULTIPLE SCLEROSIS
     Dosage: 25 GM X 2 D Q 4 WKS
  2. OCTAGAM [Suspect]

REACTIONS (2)
  - CAROTID ARTERY OCCLUSION [None]
  - CEREBRAL INFARCTION [None]
